FAERS Safety Report 5575816-9 (Version None)
Quarter: 2007Q4

REPORT INFORMATION
  Report Type: 
  Country: None (occurrence: None)
  Receive Date: 20071130
  Receipt Date: 20070801
  Transmission Date: 20080405
  Serious: No
  Sender: FDA-Public Use
  Company Number: US200708000176

PATIENT
  Age: 76 Year
  Sex: Female
  Weight: 101.1 kg

DRUGS (8)
  1. BYETTA [Suspect]
     Indication: TYPE 2 DIABETES MELLITUS
     Dosage: 5 UG, 2/D, SUBCUTANEOUS
     Route: 058
     Dates: start: 20070701, end: 20070701
  2. GLIMEPIRIDE [Concomitant]
  3. COREG [Concomitant]
  4. BENICAR [Concomitant]
  5. COUMADIN [Concomitant]
  6. TIMOLOL MALEATE [Concomitant]
  7. FUROSEMIDE [Concomitant]
  8. POTASSIUM (POTASSIUM) [Concomitant]

REACTIONS (1)
  - INTRAOCULAR PRESSURE INCREASED [None]
